FAERS Safety Report 21721467 (Version 1)
Quarter: 2022Q4

REPORT INFORMATION
  Report Type: Spontaneous
  Country: US (occurrence: US)
  Receive Date: 20221213
  Receipt Date: 20221213
  Transmission Date: 20230113
  Serious: Yes (Hospitalization, Other)
  Sender: FDA-Public Use
  Company Number: US-AMGEN-USASP2022209149

PATIENT

DRUGS (1)
  1. RITUXIMAB [Suspect]
     Active Substance: RITUXIMAB
     Indication: Neuromyelitis optica spectrum disorder
     Dosage: UNK
     Route: 065

REACTIONS (9)
  - Urosepsis [Unknown]
  - COVID-19 [Unknown]
  - Eye infection [Unknown]
  - Skin bacterial infection [Unknown]
  - Pneumonia bacterial [Unknown]
  - Herpes zoster disseminated [Unknown]
  - Hypogammaglobulinaemia [Unknown]
  - Off label use [Unknown]
  - Lymphopenia [Unknown]
